FAERS Safety Report 17867629 (Version 1)
Quarter: 2020Q2

REPORT INFORMATION
  Report Type: Report from Study
  Country: AR (occurrence: AR)
  Receive Date: 20200605
  Receipt Date: 20200605
  Transmission Date: 20200714
  Serious: Yes (Death, Other)
  Sender: FDA-Public Use
  Company Number: AR-BRISTOL-MYERS SQUIBB COMPANY-BMS-2020-043989

PATIENT
  Age: 78 Year
  Sex: Male

DRUGS (1)
  1. APIXABAN [Suspect]
     Active Substance: APIXABAN
     Indication: CEREBROVASCULAR ACCIDENT PROPHYLAXIS
     Dosage: 50 MILLIGRAM
     Route: 065
     Dates: start: 20200121

REACTIONS (5)
  - Hepatic cancer [Unknown]
  - Bradycardia [Unknown]
  - Neoplasm malignant [Unknown]
  - Colon cancer [Unknown]
  - Death [Fatal]

NARRATIVE: CASE EVENT DATE: 202004
